FAERS Safety Report 7228128-1 (Version None)
Quarter: 2011Q1

REPORT INFORMATION
  Report Type: 
  Country: None (occurrence: None)
  Receive Date: 20110114
  Receipt Date: 20110112
  Transmission Date: 20110831
  Serious: Yes (Life-Threatening)
  Sender: FDA-Public Use
  Company Number: FR-B.I. PHARMACEUTICALS,INC./RIDGEFIELD-2011-FF-00023FF

PATIENT

DRUGS (1)
  1. PRADAXA [Suspect]
     Route: 048
     Dates: end: 20110107

REACTIONS (1)
  - MYOCARDIAL INFARCTION [None]
